FAERS Safety Report 8180854 (Version 7)
Quarter: 2018Q4

REPORT INFORMATION
  Report Type: Spontaneous
  Country: DE (occurrence: DE)
  Receive Date: 20111014
  Receipt Date: 20181030
  Transmission Date: 20190205
  Serious: Yes (Hospitalization, Congenital Anomaly, Other)
  Sender: FDA-Public Use
  Company Number: DE-PFIZER INC-2011240717

PATIENT

DRUGS (25)
  1. CYCLOSPORINE A [Suspect]
     Active Substance: CYCLOSPORINE
     Indication: GLOMERULONEPHRITIS MEMBRANOUS
     Dosage: 150 MG, 2X/DAY
     Route: 064
     Dates: start: 20091031, end: 20110131
  2. RITUXIMAB. [Suspect]
     Active Substance: RITUXIMAB
     Indication: SYSTEMIC LUPUS ERYTHEMATOSUS
     Dosage: UNK (LAST TIME IN DECEMBER 2011: PRE OR PERICONCEPTIONAL)
     Route: 064
  3. PANTOZOL [Concomitant]
     Active Substance: PANTOPRAZOLE SODIUM
     Indication: GASTRITIS PROPHYLAXIS
     Dosage: UNK
     Route: 064
     Dates: start: 20111214, end: 20120320
  4. ALISKIREN [Concomitant]
     Active Substance: ALISKIREN
     Indication: HYPERTENSION
     Dosage: UNK
     Route: 064
     Dates: start: 20111214, end: 20120117
  5. QUENSYL [Suspect]
     Active Substance: HYDROXYCHLOROQUINE
     Indication: SYSTEMIC LUPUS ERYTHEMATOSUS
     Dosage: 400 MG, DAILY (EVERY DAYS)
     Route: 064
     Dates: start: 20111214
  6. XARELTO [Concomitant]
     Active Substance: RIVAROXABAN
     Indication: VENA CAVA THROMBOSIS
     Dosage: 10 MG, UNK
     Route: 064
  7. DELIX (RAMIPRIL) [Suspect]
     Active Substance: RAMIPRIL
     Indication: NEPHROTIC SYNDROME
     Dosage: 5 MG, 1X/DAY
     Route: 064
     Dates: start: 20101031
  8. FALITHROM [Suspect]
     Active Substance: PHENPROCOUMON
     Indication: PULMONARY EMBOLISM
     Dosage: 3 MG, 2X/DAY
     Route: 064
     Dates: start: 20091031, end: 20110113
  9. ALBUTEROL [SALBUTAMOL] [Concomitant]
     Active Substance: ALBUTEROL
     Indication: ASTHMA
     Dosage: UNK
     Route: 064
  10. ASPIRIN. [Concomitant]
     Active Substance: ASPIRIN
     Indication: VENA CAVA THROMBOSIS
     Dosage: UNK
     Route: 064
     Dates: start: 20111214, end: 20120320
  11. NOVAMINSULFON [Concomitant]
     Active Substance: METAMIZOLE
     Indication: PAIN
     Dosage: UNK
     Route: 064
  12. TOREM (TORASEMIDE) [Suspect]
     Active Substance: TORSEMIDE
     Indication: NEPHROTIC SYNDROME
     Dosage: 100 MG, UNK
     Route: 064
     Dates: start: 20111214
  13. INEGY [Suspect]
     Active Substance: EZETIMIBE\SIMVASTATIN
     Indication: HYPERCHOLESTEROLAEMIA
     Dosage: UNK (UNK40 [MG/D ] / 10 [MG/D )
     Route: 064
     Dates: start: 20111214
  14. ADVAGRAF [Suspect]
     Active Substance: TACROLIMUS
     Indication: SYSTEMIC LUPUS ERYTHEMATOSUS
     Dosage: 6 MG, UNK (6 MG, UNK 6 [MG/D ])
     Route: 064
     Dates: start: 20111214
  15. CLEXANE [Concomitant]
     Active Substance: ENOXAPARIN SODIUM
     Indication: DEEP VEIN THROMBOSIS
     Dosage: 60MG AND 80 MG, 140 MG, 1X/DAY
     Route: 064
     Dates: start: 20110114, end: 20110131
  16. CYTOTEC [Concomitant]
     Active Substance: MISOPROSTOL
     Indication: ABORTION INDUCED
     Dosage: UNK
     Route: 064
     Dates: start: 20120320, end: 20120320
  17. CYCLOPHOSPHAMID [Concomitant]
     Active Substance: CYCLOPHOSPHAMIDE
     Indication: SYSTEMIC LUPUS ERYTHEMATOSUS
     Dosage: UNK
     Route: 064
     Dates: start: 201104, end: 201108
  18. SALBUTAMOL [Concomitant]
     Active Substance: ALBUTEROL
     Indication: ASTHMA
     Dosage: UNK
     Route: 064
  19. TOREM (TORASEMIDE) [Suspect]
     Active Substance: TORSEMIDE
     Indication: GLOMERULONEPHRITIS MEMBRANOUS
     Dosage: 10 MG, 1X/DAY
     Route: 064
     Dates: start: 20101031, end: 20110126
  20. TACROLIMUS. [Suspect]
     Active Substance: TACROLIMUS
     Indication: SYSTEMIC LUPUS ERYTHEMATOSUS
     Dosage: 6 MG, UNK
     Route: 064
  21. CLEXANE [Concomitant]
     Active Substance: ENOXAPARIN SODIUM
     Indication: PULMONARY EMBOLISM
     Dosage: UNK
     Route: 064
     Dates: start: 20111214, end: 20120320
  22. PREDNISOLONE. [Concomitant]
     Active Substance: PREDNISOLONE
     Indication: SYSTEMIC LUPUS ERYTHEMATOSUS
     Dosage: 7.5 MG, 1X/DAY
     Route: 064
     Dates: start: 20091031, end: 20110131
  23. PREDNISOLONE. [Concomitant]
     Active Substance: PREDNISOLONE
     Dosage: UNK
     Route: 064
     Dates: start: 20111214, end: 20120320
  24. MIFEGYNE [Concomitant]
     Active Substance: MIFEPRISTONE
     Indication: ABORTION INDUCED
     Dosage: UNK
     Route: 064
     Dates: start: 20120320, end: 20120320
  25. RASILEZ [Concomitant]
     Active Substance: ALISKIREN
     Indication: HYPERTENSION
     Dosage: UNK
     Route: 064
     Dates: start: 20111214, end: 20120117

REACTIONS (4)
  - Fallot^s tetralogy [Not Recovered/Not Resolved]
  - Abortion induced [None]
  - Maternal drugs affecting foetus [None]
  - Foetal exposure during pregnancy [Not Recovered/Not Resolved]
